FAERS Safety Report 11257674 (Version 1)
Quarter: 2015Q3

REPORT INFORMATION
  Report Type: Spontaneous
  Country: US (occurrence: US)
  Receive Date: 20150710
  Receipt Date: 20150710
  Transmission Date: 20151125
  Serious: Yes (Other)
  Sender: FDA-Public Use
  Company Number: US-AUROBINDO-AUR-APL-2015-05706

PATIENT
  Age: 81 Year
  Sex: Male
  Weight: 69 kg

DRUGS (6)
  1. CLOPIDOGREL [Suspect]
     Active Substance: CLOPIDOGREL BISULFATE
     Indication: PROPHYLAXIS
     Dosage: 75 MG,ONE AT BED TIME DAILY
     Route: 048
  2. GABAPENTIN CAPSULES 300 MG [Suspect]
     Active Substance: GABAPENTIN
     Indication: PROPHYLAXIS
     Dosage: 300 MG, TWO TIMES A DAY
     Route: 065
  3. MULTIVITAMIN                       /00097801/ [Concomitant]
     Active Substance: VITAMINS
     Indication: EYE DISORDER
     Route: 065
  4. CENTRUM SILVER                     /02363801/ [Suspect]
     Active Substance: VITAMINS
     Dosage: 125 TABLETS, ONCE IN THE MORNING
  5. METOPROLOL TARTRATE TABLETS USP 25 MG [Suspect]
     Active Substance: METOPROLOL TARTRATE
     Indication: BLOOD PRESSURE MEASUREMENT
     Dosage: 25 MG,ONE IN EVENING DAILY
     Route: 048
  6. SIMVASTATIN TABLETS USP 80 MG [Suspect]
     Active Substance: SIMVASTATIN
     Indication: BLOOD CHOLESTEROL
     Dosage: 80 MG,ONCE A DAY AT BED TIME
     Route: 065

REACTIONS (7)
  - Back pain [Not Recovered/Not Resolved]
  - Incontinence [Not Recovered/Not Resolved]
  - Incorrect dose administered [Unknown]
  - Dizziness [Not Recovered/Not Resolved]
  - Gait disturbance [Not Recovered/Not Resolved]
  - Off label use [Unknown]
  - Abnormal behaviour [Not Recovered/Not Resolved]

NARRATIVE: CASE EVENT DATE: 20150628
